FAERS Safety Report 21616404 (Version 1)
Quarter: 2022Q4

REPORT INFORMATION
  Report Type: Report from Study
  Country: US (occurrence: US)
  Receive Date: 20221118
  Receipt Date: 20221118
  Transmission Date: 20230112
  Serious: No
  Sender: FDA-Public Use
  Company Number: US-ABBVIE-4188220

PATIENT
  Age: 38 Year
  Sex: Female

DRUGS (1)
  1. HUMIRA [Suspect]
     Active Substance: ADALIMUMAB
     Indication: Product used for unknown indication
     Dosage: FORM STRENGTH 40 MILLIGRAM
     Route: 058

REACTIONS (7)
  - Injection site pain [Unknown]
  - Injection site bruising [Unknown]
  - Device issue [Not Recovered/Not Resolved]
  - Wrong technique in product usage process [Not Recovered/Not Resolved]
  - Injection site haemorrhage [Unknown]
  - Injection site swelling [Unknown]
  - Headache [Unknown]

NARRATIVE: CASE EVENT DATE: 20221019
